FAERS Safety Report 10889095 (Version 2)
Quarter: 2015Q4

REPORT INFORMATION
  Report Type: Spontaneous
  Country: US (occurrence: US)
  Receive Date: 20150305
  Receipt Date: 20151005
  Transmission Date: 20160304
  Serious: Yes (Death)
  Sender: FDA-Public Use
  Company Number: US-ABBVIE-15P-163-1356023-00

PATIENT
  Sex: Male

DRUGS (1)
  1. ANDROGEL [Suspect]
     Active Substance: TESTOSTERONE
     Indication: BLOOD TESTOSTERONE DECREASED
     Route: 061
     Dates: start: 2006, end: 20130306

REACTIONS (7)
  - Pain [Unknown]
  - Pulmonary embolism [Fatal]
  - Injury [Unknown]
  - Economic problem [Unknown]
  - Impaired work ability [Unknown]
  - Thrombosis [Fatal]
  - Emotional distress [Unknown]

NARRATIVE: CASE EVENT DATE: 20130306
